FAERS Safety Report 7314515-X (Version None)
Quarter: 2011Q1

REPORT INFORMATION
  Report Type: 
  Country: None (occurrence: None)
  Receive Date: 20110225
  Receipt Date: 20101101
  Transmission Date: 20110831
  Serious: No
  Sender: FDA-Public Use
  Company Number: US-MYLANLABS-2010S1017223

PATIENT
  Age: 17 Year
  Sex: Female
  Weight: 54.89 kg

DRUGS (1)
  1. AMNESTEEM [Suspect]
     Indication: ACNE
     Route: 048
     Dates: start: 20100706, end: 20100812

REACTIONS (5)
  - ANXIETY [None]
  - COSTOCHONDRITIS [None]
  - ACUTE STRESS DISORDER [None]
  - BLOOD CHOLESTEROL INCREASED [None]
  - DEPRESSION [None]
